FAERS Safety Report 10445917 (Version 1)
Quarter: 2014Q3

REPORT INFORMATION
  Report Type: Spontaneous
  Country: US (occurrence: US)
  Receive Date: 20140910
  Receipt Date: 20140910
  Transmission Date: 20150326
  Serious: Yes (Other)
  Sender: FDA-Public Use
  Company Number: CHPA2014US011769

PATIENT
  Age: 68 Year
  Sex: Female

DRUGS (1)
  1. NICOTINE. [Suspect]
     Active Substance: NICOTINE
     Indication: SMOKING CESSATION THERAPY
     Dosage: 1 DF, ONCE/SINGLE
     Route: 062
     Dates: start: 20140902, end: 20140902

REACTIONS (7)
  - Loss of consciousness [Recovered/Resolved]
  - Contusion [Unknown]
  - Head injury [Unknown]
  - Cerebrovascular accident [Unknown]
  - Convulsion [Unknown]
  - Fall [Unknown]
  - Periorbital contusion [Unknown]

NARRATIVE: CASE EVENT DATE: 20140902
